FAERS Safety Report 6601865-5 (Version None)
Quarter: 2010Q1

REPORT INFORMATION
  Report Type: 
  Country: None (occurrence: None)
  Receive Date: 20100218
  Receipt Date: 20100203
  Transmission Date: 20100710
  Serious: Yes (Other)
  Sender: FDA-Public Use
  Company Number: 1-21567194

PATIENT
  Age: 45 Year
  Sex: Female

DRUGS (3)
  1. LAMOTRIGINE [Suspect]
     Indication: BIPOLAR DISORDER
     Dosage: 200 MG PER DAY, ORAL
     Route: 048
  2. TOPIRAMATE [Concomitant]
  3. BUPROPION HCL [Concomitant]

REACTIONS (10)
  - ANTINUCLEAR ANTIBODY POSITIVE [None]
  - ARTHRALGIA [None]
  - DRY EYE [None]
  - DRY MOUTH [None]
  - KERATOCONJUNCTIVITIS SICCA [None]
  - LIVEDO RETICULARIS [None]
  - MALAISE [None]
  - RASH GENERALISED [None]
  - RAYNAUD'S PHENOMENON [None]
  - RED BLOOD CELL SEDIMENTATION RATE INCREASED [None]
